FAERS Safety Report 25039917 (Version 1)
Quarter: 2025Q1

REPORT INFORMATION
  Report Type: Other
  Country: CN (occurrence: CN)
  Receive Date: 20250305
  Receipt Date: 20250305
  Transmission Date: 20250409
  Serious: Yes (Hospitalization, Other)
  Sender: ANI
  Company Number: CN-ANIPHARMA-015781

PATIENT
  Age: 75 Year
  Sex: Male

DRUGS (21)
  1. LEUCOVORIN CALCIUM [Suspect]
     Active Substance: LEUCOVORIN CALCIUM
     Indication: Small intestine adenocarcinoma
     Route: 042
  2. TRASTUZUMAB [Concomitant]
     Active Substance: TRASTUZUMAB
     Indication: Small intestine adenocarcinoma
     Route: 042
     Dates: start: 201909
  3. OXALIPLATIN [Concomitant]
     Active Substance: OXALIPLATIN
     Indication: Small intestine adenocarcinoma
     Route: 042
     Dates: start: 201909
  4. FLUOROURACIL [Concomitant]
     Active Substance: FLUOROURACIL
     Indication: Small intestine adenocarcinoma
     Route: 042
  5. IRINOTECAN [Concomitant]
     Active Substance: IRINOTECAN
     Indication: Small intestine adenocarcinoma
     Route: 042
  6. TRASTUZUMAB [Concomitant]
     Active Substance: TRASTUZUMAB
     Indication: HER2 gene amplification
  7. OXALIPLATIN [Concomitant]
     Active Substance: OXALIPLATIN
     Indication: HER2 gene amplification
     Route: 042
     Dates: start: 201909
  8. IRINOTECAN [Concomitant]
     Active Substance: IRINOTECAN
     Indication: HER2 gene amplification
     Route: 042
  9. TRASTUZUMAB [Concomitant]
     Active Substance: TRASTUZUMAB
     Indication: Small intestine adenocarcinoma
     Route: 042
     Dates: start: 202004, end: 202101
  10. TRASTUZUMAB [Concomitant]
     Active Substance: TRASTUZUMAB
     Indication: Small intestine adenocarcinoma
     Route: 042
  11. FLUOROURACIL [Concomitant]
     Active Substance: FLUOROURACIL
     Indication: HER2 gene amplification
     Route: 042
  12. FLUOROURACIL [Concomitant]
     Active Substance: FLUOROURACIL
     Indication: Small intestine adenocarcinoma
     Route: 042
  13. LEUCOVORIN CALCIUM [Suspect]
     Active Substance: LEUCOVORIN CALCIUM
     Indication: HER2 gene amplification
     Route: 042
  14. OXALIPLATIN [Concomitant]
     Active Substance: OXALIPLATIN
     Indication: Small intestine adenocarcinoma
     Route: 042
  15. TRASTUZUMAB [Concomitant]
     Active Substance: TRASTUZUMAB
     Indication: Small intestine adenocarcinoma
     Route: 042
  16. FLUOROURACIL [Concomitant]
     Active Substance: FLUOROURACIL
     Indication: Small intestine adenocarcinoma
     Route: 042
  17. FLUOROURACIL [Concomitant]
     Active Substance: FLUOROURACIL
     Indication: Small intestine adenocarcinoma
     Route: 042
  18. LEUCOVORIN CALCIUM [Suspect]
     Active Substance: LEUCOVORIN CALCIUM
     Indication: Small intestine adenocarcinoma
     Route: 042
  19. FLUOROURACIL [Concomitant]
     Active Substance: FLUOROURACIL
     Indication: Small intestine adenocarcinoma
     Route: 042
  20. FLUOROURACIL [Concomitant]
     Active Substance: FLUOROURACIL
     Indication: Small intestine adenocarcinoma
     Route: 042
  21. LEUCOVORIN CALCIUM [Suspect]
     Active Substance: LEUCOVORIN CALCIUM
     Indication: Small intestine adenocarcinoma
     Route: 042

REACTIONS (1)
  - Neurotoxicity [Unknown]
